FAERS Safety Report 21910577 (Version 1)
Quarter: 2023Q1

REPORT INFORMATION
  Report Type: Spontaneous
  Country: GB (occurrence: GB)
  Receive Date: 20230125
  Receipt Date: 20230125
  Transmission Date: 20230417
  Serious: Yes (Hospitalization)
  Sender: FDA-Public Use
  Company Number: GB-ADVANZ PHARMA-202301000381

PATIENT

DRUGS (2)
  1. PARNATE [Suspect]
     Active Substance: TRANYLCYPROMINE SULFATE
     Indication: Depression
     Dosage: 10 MG, BID (MORNING AND AFTERNOON)
     Dates: start: 202212
  2. PARNATE [Suspect]
     Active Substance: TRANYLCYPROMINE SULFATE
     Indication: Claustrophobia

REACTIONS (1)
  - Psychotic disorder [Not Recovered/Not Resolved]

NARRATIVE: CASE EVENT DATE: 20230101
